FAERS Safety Report 15564041 (Version 1)
Quarter: 2018Q4

REPORT INFORMATION
  Report Type: Spontaneous
  Country: ES (occurrence: ES)
  Receive Date: 20181030
  Receipt Date: 20181030
  Transmission Date: 20190205
  Serious: Yes (Life-Threatening, Hospitalization, Other)
  Sender: FDA-Public Use
  Company Number: ES-SUN PHARMACEUTICAL INDUSTRIES LTD-2018RR-189210

PATIENT
  Age: 14 Year
  Sex: Male

DRUGS (4)
  1. FUROSEMIDA (1615A) [Suspect]
     Active Substance: FUROSEMIDE
     Indication: GLOMERULONEPHRITIS
     Dosage: 20 MG, TID
     Route: 048
     Dates: start: 20180804, end: 20180831
  2. ALLOPURINOL. [Suspect]
     Active Substance: ALLOPURINOL
     Indication: HYPERURICAEMIA
     Dosage: 100 MG, QD
     Route: 048
     Dates: start: 20180804, end: 20180831
  3. NIFEDIPINO (3253A) [Concomitant]
     Indication: HYPERTENSION
     Dosage: 30 MEQ, TID
     Route: 048
     Dates: start: 20180804, end: 20180902
  4. VACHBV - VACUNA HEPATITIS B VIRICA        (SIN ESPECIFICAR) [Concomitant]
     Indication: HEPATITIS B IMMUNISATION
     Dosage: UNK
     Route: 030
     Dates: start: 20180823, end: 20180823

REACTIONS (1)
  - Drug reaction with eosinophilia and systemic symptoms [Recovered/Resolved]

NARRATIVE: CASE EVENT DATE: 20180823
